FAERS Safety Report 9391271 (Version 4)
Quarter: 2014Q1

REPORT INFORMATION
  Report Type: Report from Study
  Country: AR (occurrence: AR)
  Receive Date: 20130709
  Receipt Date: 20140130
  Transmission Date: 20141002
  Serious: Yes (Other)
  Sender: FDA-Public Use
  Company Number: PHHY2013AR072431

PATIENT
  Sex: Female

DRUGS (3)
  1. ONBREZ [Suspect]
     Indication: LUNG DISORDER
     Dosage: 150 UG, QD
     Route: 055
     Dates: start: 201306
  2. ONBREZ [Suspect]
     Indication: CHRONIC OBSTRUCTIVE PULMONARY DISEASE
  3. ONBREZ [Suspect]
     Indication: OFF LABEL USE

REACTIONS (3)
  - Choking [Recovered/Resolved]
  - Spirometry abnormal [Unknown]
  - Nodule [Unknown]
